FAERS Safety Report 5678296-8 (Version None)
Quarter: 2008Q1

REPORT INFORMATION
  Report Type: 
  Country: None (occurrence: None)
  Receive Date: 20080320
  Receipt Date: 20080314
  Transmission Date: 20080703
  Serious: Yes (Other)
  Sender: FDA-Public Use
  Company Number: 2008006487

PATIENT
  Sex: Female

DRUGS (1)
  1. ROGAINE [Suspect]
     Dosage: ORAL
     Route: 048

REACTIONS (2)
  - ACCIDENTAL EXPOSURE [None]
  - GLOSSODYNIA [None]
